FAERS Safety Report 5123125-4 (Version None)
Quarter: 2006Q4

REPORT INFORMATION
  Report Type: 
  Country: None (occurrence: None)
  Receive Date: 20061009
  Receipt Date: 20020722
  Transmission Date: 20070319
  Serious: Yes (Death, Hospitalization)
  Sender: FDA-Public Use
  Company Number: GB-AVENTIS-200216061GDDC

PATIENT
  Age: 89 Year
  Sex: Female

DRUGS (8)
  1. FRUMIL [Suspect]
     Indication: CORONARY ARTERY DISEASE
     Route: 048
  2. FRUMIL [Suspect]
     Indication: ANGINA PECTORIS
     Route: 048
  3. LISINOPRIL [Suspect]
     Indication: ANGINA PECTORIS
     Route: 048
  4. LISINOPRIL [Suspect]
     Indication: CORONARY ARTERY DISEASE
     Route: 048
  5. QUININE SULFATE [Concomitant]
     Route: 048
  6. ATENOLOL [Concomitant]
     Route: 048
  7. ASPIRIN [Concomitant]
     Route: 048
  8. BUSCOPAN [Concomitant]
     Route: 048

REACTIONS (11)
  - BLOOD POTASSIUM INCREASED [None]
  - BRADYCARDIA [None]
  - CARDIAC FAILURE CONGESTIVE [None]
  - CHEST PAIN [None]
  - DIZZINESS [None]
  - DYSPNOEA [None]
  - HAEMOGLOBIN DECREASED [None]
  - HYPERKALAEMIA [None]
  - MALAISE [None]
  - MYOCARDIAL INFARCTION [None]
  - RENAL FAILURE CHRONIC [None]
